FAERS Safety Report 14813314 (Version 1)
Quarter: 2018Q2

REPORT INFORMATION
  Report Type: Spontaneous
  Country: FR (occurrence: FR)
  Receive Date: 20180426
  Receipt Date: 20180426
  Transmission Date: 20180711
  Serious: Yes (Hospitalization)
  Sender: FDA-Public Use
  Company Number: FR-TEVA-2018-FR-886377

PATIENT
  Age: 29 Year
  Sex: Male

DRUGS (5)
  1. METHADONE AP-HP [Suspect]
     Active Substance: METHADONE HYDROCHLORIDE
     Indication: TOXICITY TO VARIOUS AGENTS
     Route: 048
  2. SERESTA [Suspect]
     Active Substance: OXAZEPAM
     Indication: TOXICITY TO VARIOUS AGENTS
     Route: 048
  3. STILNOX 10 MG, TABLET COATED SCORED [Suspect]
     Active Substance: ZOLPIDEM TARTRATE
     Indication: TOXICITY TO VARIOUS AGENTS
     Route: 048
  4. COCAINE [Suspect]
     Active Substance: COCAINE
     Indication: TOXICITY TO VARIOUS AGENTS
     Route: 065
  5. SERTRALINE [Suspect]
     Active Substance: SERTRALINE HYDROCHLORIDE
     Indication: TOXICITY TO VARIOUS AGENTS
     Route: 048

REACTIONS (5)
  - Drug dependence [Not Recovered/Not Resolved]
  - Anxiety [Recovered/Resolved]
  - Drug abuse [Recovered/Resolved]
  - Tremor [Recovered/Resolved]
  - Drug abuse [Not Recovered/Not Resolved]
